FAERS Safety Report 9633080 (Version 4)
Quarter: 2014Q1

REPORT INFORMATION
  Report Type: Spontaneous
  Country: FR (occurrence: FR)
  Receive Date: 20131018
  Receipt Date: 20140307
  Transmission Date: 20141002
  Serious: Yes (Hospitalization, Other)
  Sender: FDA-Public Use
  Company Number: FR-ABBVIE-13P-056-1154806-00

PATIENT
  Age: 43 Year
  Sex: Female
  Weight: 65 kg

DRUGS (3)
  1. HUMIRA [Suspect]
     Indication: CROHN^S DISEASE
     Dosage: TOTAL OF 4 INJECTIONS
     Route: 058
     Dates: start: 201306, end: 201307
  2. REMICADE [Suspect]
     Indication: CROHN^S DISEASE
     Dosage: TOTAL DOSE OF 4 INFUSIONS
     Route: 042
     Dates: start: 20120911, end: 20121118
  3. REMICADE [Suspect]
     Dosage: 3 INFUSIONS
     Route: 042
     Dates: start: 20130205, end: 20130514

REACTIONS (14)
  - Amyotrophic lateral sclerosis [Not Recovered/Not Resolved]
  - Facial paresis [Not Recovered/Not Resolved]
  - Muscle contractions involuntary [Not Recovered/Not Resolved]
  - Aphasia [Not Recovered/Not Resolved]
  - Neurological symptom [Unknown]
  - Motor neurone disease [Unknown]
  - Dysphagia [Unknown]
  - Dysaesthesia [Unknown]
  - Dysarthria [Not Recovered/Not Resolved]
  - Dysphagia [Not Recovered/Not Resolved]
  - VIIth nerve paralysis [Unknown]
  - Tongue disorder [Unknown]
  - Syncope [Unknown]
  - Unevaluable event [Unknown]
